FAERS Safety Report 7455231-3 (Version None)
Quarter: 2011Q2

REPORT INFORMATION
  Report Type: 
  Country: None (occurrence: None)
  Receive Date: 20110503
  Receipt Date: 20110422
  Transmission Date: 20111010
  Serious: Yes (Other)
  Sender: FDA-Public Use
  Company Number: PHHY2011IT36317

PATIENT
  Sex: Female

DRUGS (1)
  1. PARLODEL [Suspect]
     Indication: PROLACTIN-PRODUCING PITUITARY TUMOUR
     Dosage: 2.5 MG, UNK
     Route: 048
     Dates: start: 19920101

REACTIONS (4)
  - PATHOLOGICAL GAMBLING [None]
  - NERVOUS SYSTEM DISORDER [None]
  - LIBIDO INCREASED [None]
  - HYPERSEXUALITY [None]
